FAERS Safety Report 23617504 (Version 1)
Quarter: 2024Q1

REPORT INFORMATION
  Report Type: Spontaneous
  Country: DE (occurrence: DE)
  Receive Date: 20240311
  Receipt Date: 20240311
  Transmission Date: 20240410
  Serious: Yes (Other)
  Sender: FDA-Public Use
  Company Number: DE-MYLANLABS-2024M1021082

PATIENT
  Age: 92 Year
  Sex: Female

DRUGS (1)
  1. FLUOROURACIL [Suspect]
     Active Substance: FLUOROURACIL
     Indication: Nasal neoplasm
     Dosage: UNK
     Route: 065

REACTIONS (4)
  - Neoplasm progression [Unknown]
  - Skin discolouration [Unknown]
  - Scab [Unknown]
  - Pruritus [Unknown]
